FAERS Safety Report 8465543-2 (Version None)
Quarter: 2012Q2

REPORT INFORMATION
  Report Type: 
  Country: None (occurrence: None)
  Receive Date: 20120626
  Receipt Date: 20120611
  Transmission Date: 20120825
  Serious: No
  Sender: FDA-Public Use
  Company Number: US-ASTRAZENECA-2012SE39151

PATIENT
  Sex: Female

DRUGS (3)
  1. PRILOSEC [Suspect]
     Route: 048
  2. NEXIUM [Concomitant]
  3. CALCIUM CARBONATE [Concomitant]

REACTIONS (4)
  - CHEST DISCOMFORT [None]
  - INTENTIONAL DRUG MISUSE [None]
  - FLATULENCE [None]
  - ABDOMINAL DISCOMFORT [None]
